FAERS Safety Report 10681466 (Version 2)
Quarter: 2014Q4

REPORT INFORMATION
  Report Type: Report from Study
  Country: CN (occurrence: CN)
  Receive Date: 20141230
  Receipt Date: 20141230
  Transmission Date: 20150529
  Serious: Yes (Other)
  Sender: FDA-Public Use
  Company Number: CN-ROCHE-544696

PATIENT
  Sex: Female

DRUGS (5)
  1. TRASTUZUMAB [Suspect]
     Active Substance: TRASTUZUMAB
     Dosage: UNTIL DISEASE PROGRESSION
     Route: 042
  2. DOCETAXEL. [Concomitant]
     Active Substance: DOCETAXEL
  3. PACLITAXEL. [Concomitant]
     Active Substance: PACLITAXEL
  4. TRASTUZUMAB [Suspect]
     Active Substance: TRASTUZUMAB
     Indication: HER-2 POSITIVE BREAST CANCER
     Dosage: 4MG/KG LOADING DOSE FOLLOWED BY 2 MG/KG WEEKLY INTRAVENOUS TRASTUZUMAB, UNTIL DISEASE PROGRESSION
     Route: 042
  5. CAPECITABINE. [Suspect]
     Active Substance: CAPECITABINE
     Indication: HER-2 POSITIVE BREAST CANCER
     Dosage: 1250 MG/SQM OF CAPECITABINE TWICE A DAY FOR DAYS 1-14, EVERY WEEK, FOR A MAXIMUM OF 6 CYCLES
     Route: 065

REACTIONS (2)
  - Bone marrow failure [Recovered/Resolved]
  - Palmar-plantar erythrodysaesthesia syndrome [Recovered/Resolved]
